FAERS Safety Report 6639708-6 (Version None)
Quarter: 2010Q1

REPORT INFORMATION
  Report Type: 
  Country: None (occurrence: None)
  Receive Date: 20100318
  Receipt Date: 20100304
  Transmission Date: 20100710
  Serious: Yes (Hospitalization, Other)
  Sender: FDA-Public Use
  Company Number: PHHY2010VE13508

PATIENT
  Sex: Male

DRUGS (10)
  1. ZOMETA [Suspect]
     Indication: BONE DISORDER
     Dosage: 4 MG POWDER AND SOLVENT FOR SOLUTION FOR INFUSION
     Dates: start: 20090901
  2. ZOMETA [Suspect]
     Dosage: UNK
     Dates: start: 20100201
  3. EXJADE [Concomitant]
     Indication: IRON OVERLOAD
     Dosage: 750 MG, QD
  4. FOLIC ACID [Concomitant]
     Dosage: 10 MG DAILY
     Route: 048
  5. PREDNISONE [Concomitant]
     Dosage: 15 MG, BID
     Route: 048
  6. VITAMIN B COMPLEX CAP [Concomitant]
     Route: 048
  7. ALDACTONE [Concomitant]
     Dosage: 25 MG (1/2 TABLET TWICE A DAY)
  8. LASIX [Concomitant]
     Dosage: 20 MG, QD
  9. CATAFLAM [Concomitant]
     Indication: PAIN
     Dosage: 1 SPOON OR 1 TABLET 150 MG
  10. BLOOD TRANSFUSION, AUXILIARY PRODUCTS [Concomitant]

REACTIONS (5)
  - DEPRESSION [None]
  - DYSPNOEA [None]
  - MULTIPLE FRACTURES [None]
  - PNEUMONIA [None]
  - UPPER LIMB FRACTURE [None]
